FAERS Safety Report 9426650 (Version 1)
Quarter: 2013Q3

REPORT INFORMATION
  Report Type: Spontaneous
  Country: US (occurrence: US)
  Receive Date: 20130730
  Receipt Date: 20130730
  Transmission Date: 20140515
  Serious: No
  Sender: FDA-Public Use
  Company Number: US-SANOFI-AVENTIS-2013SA059476

PATIENT
  Age: 75 Year
  Sex: Male

DRUGS (2)
  1. AMBIEN [Suspect]
     Indication: SLEEP DISORDER
     Dosage: DOSE: 2 TABLETS QHS
     Route: 048
  2. MORPHINE [Concomitant]

REACTIONS (2)
  - Circadian rhythm sleep disorder [Not Recovered/Not Resolved]
  - Intentional overdose [Unknown]
